FAERS Safety Report 7439609-X (Version None)
Quarter: 2011Q2

REPORT INFORMATION
  Report Type: 
  Country: None (occurrence: None)
  Receive Date: 20110427
  Receipt Date: 20101208
  Transmission Date: 20111010
  Serious: Yes (Other)
  Sender: FDA-Public Use
  Company Number: US-BAYER-201024544NA

PATIENT
  Age: 26 Year
  Sex: Female
  Weight: 90.703 kg

DRUGS (5)
  1. PRENATAL [VIT C,B5,B12,D2,B3,B6,RETINOL PALMIT,B2,B1 MONONITR] [Concomitant]
  2. FERROUS GLUCONATE [Concomitant]
  3. WELLBUTRIN XL [Concomitant]
  4. YASMIN [Suspect]
     Indication: CONTRACEPTION
     Dosage: UNK UNK, QD
     Route: 048
     Dates: start: 20060201, end: 20060601
  5. WELLBUTRIN [Concomitant]

REACTIONS (6)
  - PAIN [None]
  - ABDOMINAL PAIN UPPER [None]
  - CHOLECYSTITIS [None]
  - CHOLECYSTITIS CHRONIC [None]
  - CHOLELITHIASIS [None]
  - GALLBLADDER DISORDER [None]
